FAERS Safety Report 8993176 (Version 1)
Quarter: 2013Q1

REPORT INFORMATION
  Report Type: Spontaneous
  Country: US (occurrence: US)
  Receive Date: 20130102
  Receipt Date: 20130102
  Transmission Date: 20140127
  Serious: Yes (Other)
  Sender: FDA-Public Use
  Company Number: US-PURDUE-USA-2012-0097260

PATIENT
  Age: 16 Year
  Sex: 0

DRUGS (1)
  1. DILAUDID TABLET [Suspect]
     Indication: ACCIDENTAL EXPOSURE TO PRODUCT
     Route: 042

REACTIONS (2)
  - Accidental exposure to product [Unknown]
  - Victim of child abuse [Unknown]
